FAERS Safety Report 9482170 (Version 1)
Quarter: 2013Q3

REPORT INFORMATION
  Report Type: Spontaneous
  Country: CH (occurrence: CH)
  Receive Date: 20130828
  Receipt Date: 20130828
  Transmission Date: 20140515
  Serious: Yes (Hospitalization)
  Sender: FDA-Public Use
  Company Number: CH-JNJFOC-20130808383

PATIENT
  Age: 73 Year
  Sex: Male
  Weight: 76.7 kg

DRUGS (12)
  1. HALDOL [Suspect]
     Indication: CONFUSIONAL STATE
     Route: 048
     Dates: start: 20090130, end: 20090204
  2. HALDOL [Suspect]
     Indication: AGITATION
     Route: 048
     Dates: start: 20090130, end: 20090204
  3. DEPAKINE [Suspect]
     Indication: DRUG THERAPY
     Route: 048
     Dates: end: 20090215
  4. XANAX [Concomitant]
     Indication: ANXIETY DISORDER
     Route: 048
  5. EFFEXOR [Concomitant]
     Indication: DEPRESSION
     Route: 048
  6. TRAMAL [Concomitant]
     Indication: PAIN
     Route: 048
     Dates: start: 20090206, end: 20090225
  7. ANXIOLIT [Concomitant]
     Indication: ABNORMAL BEHAVIOUR
     Route: 048
     Dates: end: 20090225
  8. ANXIOLIT [Concomitant]
     Indication: MENTAL DISORDER
     Route: 048
     Dates: end: 20090225
  9. CLEXANE [Concomitant]
     Indication: THROMBOSIS PROPHYLAXIS
     Route: 058
     Dates: start: 20090116, end: 20090209
  10. GLUCOPHAGE [Concomitant]
     Indication: TYPE 2 DIABETES MELLITUS
     Route: 048
  11. ASPIRIN CARDIO [Concomitant]
     Indication: PROPHYLAXIS
     Route: 048
  12. LISINOPRIL [Concomitant]
     Indication: ESSENTIAL HYPERTENSION
     Route: 048

REACTIONS (2)
  - Hyperammonaemia [Recovered/Resolved]
  - Cholestatic liver injury [Recovering/Resolving]
